FAERS Safety Report 5430123-X (Version None)
Quarter: 2007Q3

REPORT INFORMATION
  Report Type: 
  Country: None (occurrence: None)
  Receive Date: 20070829
  Receipt Date: 20070822
  Transmission Date: 20080115
  Serious: Yes (Hospitalization)
  Sender: FDA-Public Use
  Company Number: AU-PFIZER INC-2007070222

PATIENT
  Age: 61 Year
  Sex: Female

DRUGS (5)
  1. SUTENT [Suspect]
     Indication: RENAL CELL CARCINOMA STAGE UNSPECIFIED
     Route: 048
  2. CITALOPRAM [Suspect]
     Indication: DEPRESSION
  3. NEXIUM [Concomitant]
  4. ATIVAN [Concomitant]
     Dosage: FREQ:ONE TO TWO PER WEEK
  5. LAETRILE [Concomitant]
     Dosage: FREQ:SIX PER DAY

REACTIONS (1)
  - ADVERSE DRUG REACTION [None]
